FAERS Safety Report 22640702 (Version 1)
Quarter: 2023Q2

REPORT INFORMATION
  Report Type: Spontaneous
  Country: FR (occurrence: FR)
  Receive Date: 20230626
  Receipt Date: 20230626
  Transmission Date: 20230722
  Serious: Yes (Hospitalization)
  Sender: FDA-Public Use
  Company Number: None

PATIENT
  Age: 43 Year
  Sex: Female

DRUGS (4)
  1. EFFEXOR [Suspect]
     Active Substance: VENLAFAXINE HYDROCHLORIDE
     Indication: Depression
     Dosage: 1 DOSAGE FORM, QD 1 PER DAY
     Route: 048
     Dates: start: 2020
  2. EFFEXOR [Suspect]
     Active Substance: VENLAFAXINE HYDROCHLORIDE
     Indication: Depression
     Dosage: 3 DOSAGE FORM, QD 3 PER DAY
     Route: 048
     Dates: start: 2020
  3. CYAMEMAZINE [Suspect]
     Active Substance: CYAMEMAZINE
     Indication: Psychotic disorder
     Dosage: 35 DROPS  QD, PER DAY (40 MG/ML)
     Route: 048
     Dates: start: 202205
  4. ABILIFY [Suspect]
     Active Substance: ARIPIPRAZOLE
     Indication: Psychotic disorder
     Dosage: 1 DOSAGE FORM, QD 1 PER DAY
     Route: 048
     Dates: start: 2020

REACTIONS (1)
  - Pyrexia [Not Recovered/Not Resolved]

NARRATIVE: CASE EVENT DATE: 20230301
